FAERS Safety Report 8791306 (Version 3)
Quarter: 2012Q4

REPORT INFORMATION
  Report Type: Spontaneous
  Country: US (occurrence: None)
  Receive Date: 20120906
  Receipt Date: 20121001
  Transmission Date: 20130627
  Serious: Yes (Life-Threatening)
  Sender: FDA-Public Use
  Company Number: 2012033251

PATIENT
  Sex: Male
  Weight: 74.12 kg

DRUGS (15)
  1. HIZENTRA [Suspect]
     Indication: IMMUNODEFICIENCY COMMON VARIABLE
     Dates: end: 2001
  2. HIZENTRA [Suspect]
     Indication: IMMUNODEFICIENCY COMMON VARIABLE
     Dosage: (7 g 1x/week, ??-Feb-2011; 35 ml; 2 sites over 1 hour Subcutaneous)
     Dates: start: 201102
  3. HIZENTRA [Suspect]
     Indication: IMMUNODEFICIENCY COMMON VARIABLE
     Dates: start: 201102
  4. HIZENTRA [Suspect]
     Indication: IMMUNODEFICIENCY COMMON VARIABLE
     Dosage: (7 g 1x/week, ??-Feb-2011; 35 ml; 2 sites over 1 hour Subcutaneous)
     Dates: start: 201102
  5. UBIDECARENONE [Concomitant]
  6. LIPITOR (ATORVASTATIN CALCIUM) [Concomitant]
  7. CENTRUM SILVER (CENTRUM SILVER) [Concomitant]
  8. IRON (IRON) [Concomitant]
  9. VITAMIN D3 (COLECALCIFEROL) [Concomitant]
  10. FLOMAX (TAMSULOSIN HYDROCHLORIDE) [Concomitant]
  11. ADVAIR (SERETIDE) [Concomitant]
  12. FISH OIL (FISH OIL) [Concomitant]
  13. ALBUTEROL (SALBUTAMOL) [Concomitant]
  14. AVODART (DUTASTERIDE) [Concomitant]
  15. BL CALCIUM (CALCIUM) [Concomitant]

REACTIONS (2)
  - Oesophageal disorder [None]
  - Choking [None]
